FAERS Safety Report 7277641-X (Version None)
Quarter: 2010Q4

REPORT INFORMATION
  Report Type: 
  Country: None (occurrence: None)
  Receive Date: 20101215
  Receipt Date: 20091102
  Transmission Date: 20110411
  Serious: Yes (Other)
  Sender: FDA-Public Use
  Company Number: ENTC2009-0394

PATIENT
  Age: 76 Year
  Sex: Female

DRUGS (10)
  1. STALEVO 100 [Suspect]
     Dates: start: 20090901
  2. CANDESARTAN [Concomitant]
  3. DILTIAZEM [Concomitant]
  4. PLAVIX [Concomitant]
  5. LIPITOR [Concomitant]
  6. REMINYL [Concomitant]
  7. BONIVA [Concomitant]
  8. SEROQUEL [Concomitant]
  9. SINEMET [Concomitant]
  10. AZILECE [Concomitant]

REACTIONS (3)
  - DRUG INEFFECTIVE [None]
  - DYSPEPSIA [None]
  - HALLUCINATION [None]
